FAERS Safety Report 10174678 (Version 1)
Quarter: 2014Q2

REPORT INFORMATION
  Report Type: Spontaneous
  Country: US (occurrence: None)
  Receive Date: 20140416
  Receipt Date: 20140416
  Transmission Date: 20141212
  Serious: No
  Sender: FDA-Public Use
  Company Number: 163-POMAL-14013593

PATIENT
  Age: 53 Year
  Sex: Female

DRUGS (17)
  1. POMALYST (POMALIDOMIDE) (4 MILLIGRAM, CAPSULES) [Suspect]
     Indication: PLASMA CELL MYELOMA
     Dosage: 4 MG, 21 IN 28 D, PO
     Route: 048
     Dates: start: 20140117
  2. KYPROLIS (CARFILZOMIB) [Concomitant]
  3. OXYCODONE (OXYCODONE) [Concomitant]
  4. FENTANYL (FENTANYL) [Concomitant]
  5. CLONAZEPAM (CLONAZEPAM) [Concomitant]
  6. LIBRAX (LIBRAX) [Concomitant]
  7. POTASSIUM CL (POTASSIUM CHLORIDE) [Concomitant]
  8. ACYCLOVIR (ACICLOVIR) (ACICLOVIR) [Concomitant]
  9. SOMA 350 (CARISOPRODOL) [Concomitant]
  10. FUROSEMIDE (FUROSEMIDE) [Concomitant]
  11. PRISTIQ (DESVENLAFAXINSUCCINATE) [Concomitant]
  12. VITAMIN D (ERGOCALCIFEROL) [Concomitant]
  13. SEROQUEL (QUETIAPINE FUMARATE) (150 MILLIGRAM, UNKNOWN) [Concomitant]
  14. LINZESS (LINACLOTIDE) [Concomitant]
  15. PREDNISONE (PREDNISONE) [Concomitant]
  16. PROAIR (FLUTICASONE PROPIONATE) [Concomitant]
  17. ADVAIR DISKUS [Concomitant]

REACTIONS (3)
  - Lethargy [None]
  - Somnolence [None]
  - Disorientation [None]
